FAERS Safety Report 9014523 (Version 1)
Quarter: 2013Q1

REPORT INFORMATION
  Report Type: Report from Study
  Country: US (occurrence: US)
  Receive Date: 20130115
  Receipt Date: 20130115
  Transmission Date: 20140127
  Serious: Yes (Other)
  Sender: FDA-Public Use
  Company Number: US-JNJFOC-20130103683

PATIENT
  Age: 67 Year
  Sex: Female
  Weight: 144.7 kg

DRUGS (16)
  1. REMICADE [Suspect]
     Indication: PSORIATIC ARTHROPATHY
     Route: 042
     Dates: start: 20121219
  2. REMICADE [Suspect]
     Indication: PSORIATIC ARTHROPATHY
     Route: 042
     Dates: start: 2012
  3. REMICADE [Suspect]
     Indication: RHEUMATOID ARTHRITIS
     Route: 042
     Dates: start: 20121219
  4. REMICADE [Suspect]
     Indication: RHEUMATOID ARTHRITIS
     Route: 042
     Dates: start: 2012
  5. CHLORZOXAZONE [Concomitant]
     Indication: PAIN
     Route: 048
  6. HYDROCODONE [Concomitant]
     Indication: PAIN
     Dosage: 10 MG-325 MG
     Route: 048
  7. NEURONTIN [Concomitant]
     Indication: PAIN
     Route: 048
  8. TRAMADOL [Concomitant]
     Indication: PAIN
     Route: 065
  9. METHOTREXATE [Concomitant]
     Route: 065
  10. FOLIC ACID [Concomitant]
     Route: 065
  11. PROMETHAZINE [Concomitant]
     Indication: NAUSEA
     Route: 065
  12. CITALOPRAM [Concomitant]
     Indication: DEPRESSION
     Route: 065
  13. CLARITIN D [Concomitant]
     Route: 065
  14. NEXIUM [Concomitant]
     Indication: GASTRIC DISORDER
     Route: 065
  15. ATACAND [Concomitant]
     Route: 065
  16. ASPIRIN [Concomitant]
     Route: 048

REACTIONS (6)
  - Blood glucose increased [Recovered/Resolved]
  - Nervousness [Recovered/Resolved]
  - Headache [Recovered/Resolved]
  - Pruritus [Recovered/Resolved]
  - Blood pressure increased [Recovered/Resolved]
  - Cold sweat [Recovered/Resolved]
